FAERS Safety Report 20257840 (Version 1)
Quarter: 2021Q4

REPORT INFORMATION
  Report Type: Spontaneous
  Country: US (occurrence: None)
  Receive Date: 20211229
  Receipt Date: 20211229
  Transmission Date: 20220303
  Serious: Yes (Death, Hospitalization)
  Sender: FDA-Public Use
  Company Number: None

PATIENT
  Age: 67 Year
  Sex: Female
  Weight: 130 kg

DRUGS (1)
  1. XELODA [Suspect]
     Active Substance: CAPECITABINE
     Indication: Rectal cancer
     Dosage: FREQUENCY : TWICE A DAY;?
     Route: 048
     Dates: start: 20211208, end: 20211216

REACTIONS (5)
  - Diarrhoea [None]
  - Dehydration [None]
  - Acute kidney injury [None]
  - Fall [None]
  - Cardio-respiratory arrest [None]

NARRATIVE: CASE EVENT DATE: 20211216
